FAERS Safety Report 13847882 (Version 1)
Quarter: 2017Q3

REPORT INFORMATION
  Report Type: Spontaneous
  Country: US (occurrence: US)
  Receive Date: 20170808
  Receipt Date: 20170808
  Transmission Date: 20171127
  Serious: Yes (Other)
  Sender: FDA-Public Use
  Company Number: None

PATIENT
  Age: 40 Year
  Sex: Female
  Weight: 55.35 kg

DRUGS (5)
  1. PRIMAL DEFENSE ULTRA ULTIMATE PROBIOTIC FORMULA WHOLE FOOD DIETARY SUPPLEMENT GARDEN OF LIFE [Concomitant]
  2. VITAFUSION CALCIUM [Concomitant]
  3. CENTRUM MULTIGUMMIES FOR WOMEN [Concomitant]
  4. AMOX / K CLAV [Suspect]
     Active Substance: AMOXICILLIN\CLAVULANATE POTASSIUM
     Indication: URINARY TRACT INFECTION
     Dosage: ?          QUANTITY:28 TABLET(S);?
     Route: 048
     Dates: start: 20170802, end: 20170807
  5. FLUCONAZOLE. [Concomitant]
     Active Substance: FLUCONAZOLE

REACTIONS (1)
  - Middle insomnia [None]

NARRATIVE: CASE EVENT DATE: 20170803
